FAERS Safety Report 6827757-4 (Version None)
Quarter: 2010Q3

REPORT INFORMATION
  Report Type: 
  Country: None (occurrence: None)
  Receive Date: 20100709
  Receipt Date: 20100628
  Transmission Date: 20110219
  Serious: No
  Sender: FDA-Public Use
  Company Number: B0614371A

PATIENT
  Sex: Female
  Weight: 56 kg

DRUGS (3)
  1. RELENZA [Suspect]
     Indication: INFLUENZA
     Dosage: 20MG PER DAY
     Route: 055
     Dates: start: 20091206, end: 20091208
  2. INFLUENZA HA VACCINE [Concomitant]
     Indication: ANTIVIRAL PROPHYLAXIS
     Route: 065
     Dates: start: 20091202, end: 20091202
  3. RITODRINE HYDROCHLORIDE [Concomitant]
     Dosage: 4IUAX PER DAY
     Route: 065
     Dates: start: 20091228, end: 20100209

REACTIONS (1)
  - DRUG EXPOSURE DURING PREGNANCY [None]
